FAERS Safety Report 14438898 (Version 3)
Quarter: 2018Q3

REPORT INFORMATION
  Report Type: Report from Study
  Country: US (occurrence: US)
  Receive Date: 20180125
  Receipt Date: 20180702
  Transmission Date: 20181010
  Serious: Yes (Hospitalization)
  Sender: FDA-Public Use
  Company Number: US-EISAI MEDICAL RESEARCH-EC-2017-027782

PATIENT
  Age: 83 Year
  Sex: Female
  Weight: 62 kg

DRUGS (10)
  1. LENVIMA [Suspect]
     Active Substance: LENVATINIB
     Route: 048
     Dates: start: 2017, end: 20171101
  2. LENVIMA [Suspect]
     Active Substance: LENVATINIB
     Route: 048
     Dates: start: 20180523, end: 20180615
  3. PRAVASTATIN. [Concomitant]
     Active Substance: PRAVASTATIN
  4. LISINOPRIL. [Concomitant]
     Active Substance: LISINOPRIL
  5. CLONIDINE HCL [Concomitant]
     Active Substance: CLONIDINE HYDROCHLORIDE
  6. LENVIMA [Suspect]
     Active Substance: LENVATINIB
     Route: 048
     Dates: start: 20171108, end: 20171121
  7. LENVIMA [Suspect]
     Active Substance: LENVATINIB
     Route: 048
     Dates: start: 2017, end: 2017
  8. LENVIMA [Suspect]
     Active Substance: LENVATINIB
     Route: 048
     Dates: end: 201801
  9. LENVIMA [Suspect]
     Active Substance: LENVATINIB
     Indication: THYROID CANCER
     Route: 048
     Dates: start: 201703, end: 20170516
  10. LENVIMA [Suspect]
     Active Substance: LENVATINIB
     Route: 048
     Dates: start: 201801, end: 2018

REACTIONS (13)
  - Hypertension [Not Recovered/Not Resolved]
  - Hypophagia [Not Recovered/Not Resolved]
  - Headache [Recovering/Resolving]
  - Dysarthria [Unknown]
  - Cough [Unknown]
  - Thyroglobulin increased [Unknown]
  - Vomiting [Not Recovered/Not Resolved]
  - Malignant neoplasm progression [Unknown]
  - Malaise [Unknown]
  - Contusion [Unknown]
  - Rash [Unknown]
  - Hyperkalaemia [Not Recovered/Not Resolved]
  - Feeling abnormal [Recovering/Resolving]

NARRATIVE: CASE EVENT DATE: 2017
